FAERS Safety Report 8215596-1 (Version None)
Quarter: 2012Q1

REPORT INFORMATION
  Report Type: 
  Country: None (occurrence: None)
  Receive Date: 20120316
  Receipt Date: 20120307
  Transmission Date: 20120608
  Serious: Yes (Other)
  Sender: FDA-Public Use
  Company Number: BR-JNJFOC-20120305344

PATIENT
  Age: 55 Year
  Sex: Female
  Weight: 66 kg

DRUGS (21)
  1. REMICADE [Suspect]
     Indication: SPONDYLITIS
     Route: 042
     Dates: start: 20120229
  2. REMICADE [Suspect]
     Route: 042
     Dates: start: 20120116
  3. METHOTREXATE [Concomitant]
     Indication: COLITIS
     Route: 065
     Dates: start: 20080101
  4. METHOTREXATE [Concomitant]
     Indication: RHEUMATOID ARTHRITIS
     Route: 065
     Dates: start: 20080101
  5. VERAPAMIL HYDROCHLORIDE [Concomitant]
     Indication: HYPERTENSION
     Route: 065
     Dates: start: 19820101
  6. HYDROCHLOROTHIAZIDE [Concomitant]
     Indication: HYPERTENSION
     Route: 065
     Dates: start: 20090101
  7. REMICADE [Suspect]
     Route: 042
     Dates: start: 20120116
  8. LOSARTAN POTASSIUM [Concomitant]
     Indication: HYPERTENSION
     Route: 065
     Dates: start: 20080101
  9. CLONAZEPAM [Concomitant]
     Indication: ANTIDEPRESSANT THERAPY
     Route: 065
     Dates: start: 20060101
  10. REMICADE [Suspect]
     Route: 042
     Dates: start: 20120116
  11. REMICADE [Suspect]
     Indication: PROCTOCOLITIS
     Route: 042
     Dates: start: 20120229
  12. REMICADE [Suspect]
     Route: 042
     Dates: start: 20120201
  13. REMICADE [Suspect]
     Route: 042
     Dates: start: 20120201
  14. DIPYRONE INJ [Concomitant]
     Indication: PAIN
     Route: 065
     Dates: start: 20070101
  15. SIMVASTATIN [Concomitant]
     Indication: BLOOD CHOLESTEROL INCREASED
     Route: 065
     Dates: start: 20080101
  16. MESALAMINE [Concomitant]
     Indication: COLITIS
     Route: 065
     Dates: start: 20080101
  17. DORFLEX [Concomitant]
     Indication: PAIN
     Route: 065
     Dates: start: 20070101
  18. PHENERGAN [Concomitant]
     Indication: PREMEDICATION
     Route: 065
  19. REMICADE [Suspect]
     Route: 042
     Dates: start: 20120201
  20. REMICADE [Suspect]
     Indication: RHEUMATOID ARTHRITIS
     Route: 042
     Dates: start: 20120229
  21. MESALAMINE [Concomitant]
     Indication: RHEUMATOID ARTHRITIS
     Route: 065
     Dates: start: 20080101

REACTIONS (14)
  - ASTHMA [None]
  - INFUSION RELATED REACTION [None]
  - DRUG INEFFECTIVE [None]
  - THROAT TIGHTNESS [None]
  - NASOPHARYNGITIS [None]
  - OROPHARYNGEAL PAIN [None]
  - DRY MOUTH [None]
  - SOMNOLENCE [None]
  - TREMOR [None]
  - BLINDNESS [None]
  - RASH PRURITIC [None]
  - PAIN [None]
  - COUGH [None]
  - DYSPNOEA [None]
